FAERS Safety Report 21575654 (Version 1)
Quarter: 2022Q4

REPORT INFORMATION
  Report Type: Other
  Country: US (occurrence: US)
  Receive Date: 20221110
  Receipt Date: 20221110
  Transmission Date: 20230112
  Serious: No
  Sender: FDA-Public Use
  Company Number: US-APOTEX-2022AP009195

PATIENT
  Sex: Female

DRUGS (1)
  1. FENTANYL TRANSDERMAL SYSTEM [Suspect]
     Active Substance: FENTANYL
     Indication: Pain
     Dosage: 1 DOSAGE FORM, EVERY 72 HOURS
     Route: 062
     Dates: start: 200703

REACTIONS (4)
  - Product formulation issue [Unknown]
  - No adverse event [Unknown]
  - Product quality issue [Unknown]
  - Therapeutic product effect decreased [Unknown]
